FAERS Safety Report 10048842 (Version 2)
Quarter: 2014Q2

REPORT INFORMATION
  Report Type: Spontaneous
  Country: IT (occurrence: FR)
  Receive Date: 20140331
  Receipt Date: 20140411
  Transmission Date: 20141212
  Serious: Yes (Hospitalization)
  Sender: FDA-Public Use
  Company Number: FR-FRI-1000065939

PATIENT
  Age: 77 Year
  Sex: Male

DRUGS (3)
  1. NEBIVOLOL [Suspect]
     Indication: HYPERTENSION
     Dosage: 5 MG
     Route: 048
  2. MEDIATENSYL [Suspect]
     Indication: HYPERTENSION
     Dosage: 60 MG
     Route: 048
     Dates: start: 20140204, end: 20140204
  3. COTAREG [Suspect]
     Indication: HYPERTENSION
     Dosage: 160MG/25 MG
     Route: 048
     Dates: end: 20140205

REACTIONS (4)
  - Transient ischaemic attack [Recovered/Resolved]
  - Atrial fibrillation [Recovered/Resolved]
  - Hypotension [Recovered/Resolved]
  - Hypovolaemia [Recovered/Resolved]
